FAERS Safety Report 8475893-1 (Version None)
Quarter: 2012Q2

REPORT INFORMATION
  Report Type: 
  Country: None (occurrence: None)
  Receive Date: 20120628
  Receipt Date: 20120621
  Transmission Date: 20120825
  Serious: Yes (Hospitalization)
  Sender: FDA-Public Use
  Company Number: JP-PFIZER INC-2012130884

PATIENT
  Age: 28 Year
  Sex: Male
  Weight: 59.8 kg

DRUGS (5)
  1. LEVOFLOXACIN [Suspect]
     Dosage: 500 MG, UNK
     Route: 048
     Dates: start: 20120514, end: 20120515
  2. LOXONIN [Concomitant]
     Dosage: UNK
     Route: 048
     Dates: start: 20120514, end: 20120515
  3. CLINDAMYCIN HCL [Suspect]
     Dosage: 600 MG, UNK
     Route: 041
     Dates: start: 20120515, end: 20120515
  4. CEFTRIAXONE [Suspect]
     Dosage: 1 G, 1X/DAY
     Route: 042
     Dates: start: 20120515, end: 20120515
  5. SULFASALAZINE [Suspect]
     Indication: COLITIS ULCERATIVE
     Dosage: 2000 MG, 1X/DAY
     Route: 048
     Dates: start: 20120420

REACTIONS (1)
  - INFECTIOUS MONONUCLEOSIS [None]
